FAERS Safety Report 11223986 (Version 1)
Quarter: 2015Q2

REPORT INFORMATION
  Report Type: Report from Study
  Country: CO (occurrence: CO)
  Receive Date: 20150629
  Receipt Date: 20150629
  Transmission Date: 20150821
  Serious: Yes (Death)
  Sender: FDA-Public Use
  Company Number: PHHY2015CO076721

PATIENT

DRUGS (1)
  1. TOBI [Suspect]
     Active Substance: TOBRAMYCIN
     Indication: CYSTIC FIBROSIS
     Dosage: 300 MG, Q12H
     Route: 055
     Dates: start: 20140601

REACTIONS (1)
  - Disease complication [Fatal]
